FAERS Safety Report 6250034-X (Version None)
Quarter: 2009Q2

REPORT INFORMATION
  Report Type: 
  Country: None (occurrence: None)
  Receive Date: 20090629
  Receipt Date: 20090619
  Transmission Date: 20091009
  Serious: Yes (Hospitalization)
  Sender: FDA-Public Use
  Company Number: PHHY2009JP06168

PATIENT
  Age: 34 Year
  Sex: Female

DRUGS (4)
  1. SIMULECT [Suspect]
     Indication: RENAL TRANSPLANT
     Dosage: 20 MG/DAY
     Route: 042
     Dates: start: 20080401
  2. TACROLIMUS [Suspect]
     Indication: RENAL TRANSPLANT
     Dosage: 8 MG/DAY
     Route: 048
     Dates: start: 20080401
  3. MYCOPHENOLATE MOFETIL [Suspect]
     Indication: RENAL TRANSPLANT
     Dosage: 2000 MG/DAY
     Route: 048
     Dates: start: 20080401
  4. PREDNISOLONE [Suspect]

REACTIONS (2)
  - HEPATITIS B [None]
  - PANCYTOPENIA [None]
